FAERS Safety Report 8589154-3 (Version None)
Quarter: 2012Q3

REPORT INFORMATION
  Report Type: 
  Country: None (occurrence: None)
  Receive Date: 20120813
  Receipt Date: 20120808
  Transmission Date: 20120928
  Serious: No
  Sender: FDA-Public Use
  Company Number: US-PFIZER INC-2012193667

PATIENT
  Age: 8 Week
  Sex: Female
  Weight: 5.442 kg

DRUGS (2)
  1. PEDIATRIC ADVIL [Suspect]
     Indication: PAIN IN EXTREMITY
  2. PEDIATRIC ADVIL [Suspect]
     Indication: PYREXIA
     Dosage: UNK, ONCE A DAY
     Route: 048
     Dates: start: 20120807, end: 20120807

REACTIONS (2)
  - DRUG ADMINISTERED TO PATIENT OF INAPPROPRIATE AGE [None]
  - SCREAMING [None]
